FAERS Safety Report 5219002-0 (Version None)
Quarter: 2007Q1

REPORT INFORMATION
  Report Type: 
  Country: None (occurrence: None)
  Receive Date: 20070125
  Receipt Date: 20070119
  Transmission Date: 20070707
  Serious: Yes (Other)
  Sender: FDA-Public Use
  Company Number: FR-AVENTIS-200710237FR

PATIENT
  Age: 60 Year
  Sex: Female

DRUGS (1)
  1. CALSYN                             /00371903/ [Suspect]
     Indication: COMPLEX REGIONAL PAIN SYNDROME
     Route: 030

REACTIONS (2)
  - CROHN'S DISEASE [None]
  - DIARRHOEA HAEMORRHAGIC [None]
